FAERS Safety Report 7991319-6 (Version None)
Quarter: 2011Q4

REPORT INFORMATION
  Report Type: 
  Country: None (occurrence: None)
  Receive Date: 20111219
  Receipt Date: 20111214
  Transmission Date: 20120403
  Serious: Yes (Other)
  Sender: FDA-Public Use
  Company Number: US-PFIZER INC-2011305638

PATIENT
  Sex: Female

DRUGS (1)
  1. NORVASC [Suspect]
     Dosage: UNK

REACTIONS (6)
  - RENAL FAILURE [None]
  - MYOCARDIAL INFARCTION [None]
  - COMA [None]
  - NEOPLASM MALIGNANT [None]
  - HEART TRANSPLANT [None]
  - VOCAL CORD PARALYSIS [None]
